FAERS Safety Report 6608540-1 (Version None)
Quarter: 2010Q1

REPORT INFORMATION
  Report Type: 
  Country: None (occurrence: None)
  Receive Date: 20100301
  Receipt Date: 20100226
  Transmission Date: 20100710
  Serious: Yes (Death, Other)
  Sender: FDA-Public Use
  Company Number: DE-CEPHALON-2010000710

PATIENT
  Sex: Female
  Weight: 53 kg

DRUGS (3)
  1. EFFENTORA [Suspect]
     Indication: CANCER PAIN
     Route: 002
  2. FORTECORTIN [Concomitant]
  3. BRONCHORET [Concomitant]

REACTIONS (4)
  - DYSPNOEA [None]
  - LOCALISED OEDEMA [None]
  - MALIGNANT NEOPLASM PROGRESSION [None]
  - PANIC REACTION [None]
